FAERS Safety Report 7150355-2 (Version None)
Quarter: 2010Q4

REPORT INFORMATION
  Report Type: 
  Country: None (occurrence: None)
  Receive Date: 20101210
  Receipt Date: 20101001
  Transmission Date: 20110411
  Serious: No
  Sender: FDA-Public Use
  Company Number: US-BAYER-201022101BCC

PATIENT
  Sex: Female
  Weight: 72.727 kg

DRUGS (2)
  1. ALEVE (CAPLET) [Suspect]
     Indication: DYSMENORRHOEA
     Dosage: UNK
     Route: 048
     Dates: start: 20100930
  2. ADVIL [Concomitant]

REACTIONS (1)
  - ABDOMINAL PAIN UPPER [None]
